FAERS Safety Report 10075806 (Version 1)
Quarter: 2014Q2

REPORT INFORMATION
  Report Type: Spontaneous
  Country: DE (occurrence: DE)
  Receive Date: 20140414
  Receipt Date: 20140414
  Transmission Date: 20141212
  Serious: Yes (Congenital Anomaly, Other)
  Sender: FDA-Public Use
  Company Number: DE-JNJFOC-20140404636

PATIENT
  Sex: 0

DRUGS (10)
  1. RISPERIDONE [Suspect]
     Indication: PSYCHOTIC DISORDER
     Route: 064
  2. HALOPERIDOL [Suspect]
     Indication: PSYCHOTIC DISORDER
     Route: 064
  3. QUETIAPINE [Suspect]
     Indication: PSYCHOTIC DISORDER
     Route: 064
  4. CLOZAPINE [Suspect]
     Indication: PSYCHOTIC DISORDER
     Route: 064
  5. ZIPRASIDONE [Suspect]
     Indication: PSYCHOTIC DISORDER
     Route: 064
  6. AMISULPRIDE [Suspect]
     Indication: PSYCHOTIC DISORDER
     Route: 064
  7. ZOTEPINE [Suspect]
     Indication: PSYCHOTIC DISORDER
     Route: 064
  8. OLANZAPINE [Suspect]
     Indication: PSYCHOTIC DISORDER
     Route: 064
  9. PROMETHAZINE [Suspect]
     Indication: PSYCHOTIC DISORDER
     Route: 064
  10. FLUPENTIXOL [Suspect]
     Indication: PSYCHOTIC DISORDER
     Route: 064

REACTIONS (2)
  - Congenital anomaly [Unknown]
  - Foetal exposure during pregnancy [Recovered/Resolved]
